FAERS Safety Report 5277338-1 (Version None)
Quarter: 2007Q1

REPORT INFORMATION
  Report Type: 
  Country: None (occurrence: None)
  Receive Date: 20061213
  Receipt Date: 20051129
  Transmission Date: 20070707
  Serious: Yes (Disabling)
  Sender: FDA-Public Use
  Company Number: 2005UW16585

PATIENT
  Age: 55 Year
  Sex: Female
  Weight: 96.6162 kg

DRUGS (4)
  1. SEROQUEL [Suspect]
     Indication: PSYCHOTIC DISORDER
     Dosage: 400 MG DAILY PO
     Route: 048
     Dates: start: 20050418
  2. ARICEPT [Concomitant]
  3. ZOLOFT [Concomitant]
  4. TRAZODONE HCL [Concomitant]

REACTIONS (1)
  - TARDIVE DYSKINESIA [None]
